FAERS Safety Report 6603870-1 (Version None)
Quarter: 2010Q1

REPORT INFORMATION
  Report Type: 
  Country: None (occurrence: None)
  Receive Date: 20100226
  Receipt Date: 20090302
  Transmission Date: 20100710
  Serious: No
  Sender: FDA-Public Use
  Company Number: A0771111A

PATIENT
  Age: 48 Year
  Sex: Female

DRUGS (3)
  1. LAMICTAL CD [Suspect]
     Indication: BIPOLAR DISORDER
     Dosage: 200MG TWICE PER DAY
     Route: 048
     Dates: start: 20020101
  2. WELLBUTRIN XL [Suspect]
     Indication: DEPRESSION
     Dosage: 150MG PER DAY
     Route: 048
     Dates: start: 20090201
  3. ESTRADIOL [Concomitant]

REACTIONS (5)
  - DECREASED APPETITE [None]
  - DRUG INEFFECTIVE [None]
  - FEELING JITTERY [None]
  - INSOMNIA [None]
  - NAUSEA [None]
